FAERS Safety Report 9108240 (Version 1)
Quarter: 2013Q1

REPORT INFORMATION
  Report Type: Spontaneous
  Country: US (occurrence: US)
  Receive Date: 20130222
  Receipt Date: 20130222
  Transmission Date: 20140127
  Serious: Yes (Other)
  Sender: FDA-Public Use
  Company Number: US-ELI_LILLY_AND_COMPANY-US201302003783

PATIENT
  Sex: Female
  Weight: 96.6 kg

DRUGS (8)
  1. BYETTA [Suspect]
     Indication: TYPE 2 DIABETES MELLITUS
     Dosage: 5 UG, BID
     Route: 058
     Dates: start: 201203
  2. BYETTA [Suspect]
     Dosage: 10 UG, QD
     Route: 058
     Dates: end: 201301
  3. BYETTA [Suspect]
     Dosage: 10 UG, BID
     Route: 058
     Dates: end: 201301
  4. BYETTA [Suspect]
     Dosage: 5 UG, BID
     Route: 058
     Dates: start: 201301
  5. BYETTA [Suspect]
     Dosage: 10 UG, QD
     Route: 058
  6. BYETTA [Suspect]
     Dosage: 10 UG, BID
     Route: 058
     Dates: end: 201301
  7. METFORMIN [Concomitant]
     Indication: TYPE 2 DIABETES MELLITUS
     Dosage: UNK, PRN
     Route: 048
  8. GLIMEPIRIDE [Concomitant]
     Indication: TYPE 2 DIABETES MELLITUS
     Dosage: UNK, PRN
     Route: 048

REACTIONS (8)
  - Presyncope [Recovering/Resolving]
  - Blood glucose decreased [Recovering/Resolving]
  - Increased appetite [Unknown]
  - Blood glucose abnormal [Not Recovered/Not Resolved]
  - Tremor [Recovering/Resolving]
  - Nausea [Recovered/Resolved]
  - Inappropriate schedule of drug administration [Not Recovered/Not Resolved]
  - Intentional drug misuse [Not Recovered/Not Resolved]
